FAERS Safety Report 13941017 (Version 6)
Quarter: 2020Q4

REPORT INFORMATION
  Report Type: Spontaneous
  Country: US (occurrence: US)
  Receive Date: 20170906
  Receipt Date: 20201118
  Transmission Date: 20210113
  Serious: Yes (Other)
  Sender: FDA-Public Use
  Company Number: US-PFIZER INC-2017383839

PATIENT
  Age: 66 Year
  Sex: Female
  Weight: 95 kg

DRUGS (2)
  1. XELJANZ XR [Suspect]
     Active Substance: TOFACITINIB CITRATE
     Indication: RHEUMATOID ARTHRITIS
     Dosage: 11 MG, 1X/DAY
     Route: 048
  2. XARELTO [Interacting]
     Active Substance: RIVAROXABAN
     Indication: DEEP VEIN THROMBOSIS
     Dosage: UNK

REACTIONS (3)
  - Deep vein thrombosis [Unknown]
  - Haemorrhage [Unknown]
  - Drug interaction [Unknown]

NARRATIVE: CASE EVENT DATE: 201707
